FAERS Safety Report 9335669 (Version 2)
Quarter: 2013Q3

REPORT INFORMATION
  Report Type: Spontaneous
  Country: US (occurrence: US)
  Receive Date: 20130607
  Receipt Date: 20130704
  Transmission Date: 20140515
  Serious: No
  Sender: FDA-Public Use
  Company Number: US-009507513-1306USA002615

PATIENT
  Age: 55 Year
  Sex: Female
  Weight: 68.27 kg

DRUGS (2)
  1. SAPHRIS [Suspect]
     Indication: BIPOLAR DISORDER
     Dosage: 10 MG HS
     Route: 060
     Dates: start: 20130527, end: 20130604
  2. SAPHRIS [Suspect]
     Indication: DEPRESSION

REACTIONS (1)
  - Akathisia [Recovered/Resolved]
